FAERS Safety Report 11045803 (Version 2)
Quarter: 2015Q2

REPORT INFORMATION
  Report Type: Spontaneous
  Country: GB (occurrence: GB)
  Receive Date: 20150417
  Receipt Date: 20150422
  Transmission Date: 20150821
  Serious: Yes (Hospitalization)
  Sender: FDA-Public Use
  Company Number: GB-009507513-1504GBR012895

PATIENT
  Age: 35 Year
  Sex: Female
  Weight: 78 kg

DRUGS (4)
  1. TERBUTALINE SULFATE. [Concomitant]
     Active Substance: TERBUTALINE SULFATE
     Route: 055
  2. NEXPLANON [Suspect]
     Active Substance: ETONOGESTREL
     Indication: CONTRACEPTIVE IMPLANT
     Route: 058
     Dates: start: 20150311, end: 20150402
  3. BUDESONIDE. [Concomitant]
     Active Substance: BUDESONIDE
     Route: 055
  4. BECONASE AQ [Concomitant]
     Active Substance: BECLOMETHASONE DIPROPIONATE MONOHYDRATE
     Route: 045

REACTIONS (2)
  - Peripheral swelling [Recovering/Resolving]
  - Erythema [Recovering/Resolving]

NARRATIVE: CASE EVENT DATE: 20150322
